FAERS Safety Report 19856312 (Version 1)
Quarter: 2021Q3

REPORT INFORMATION
  Report Type: Spontaneous
  Country: CA (occurrence: CA)
  Receive Date: 20210920
  Receipt Date: 20210920
  Transmission Date: 20211014
  Serious: Yes (Life-Threatening, Disabling, Other)
  Sender: FDA-Public Use
  Company Number: CA-TEVA-2021-CA-1954133

PATIENT
  Age: 79 Year
  Sex: Female
  Weight: 98 kg

DRUGS (23)
  1. CIPROFLOXACIN. [Suspect]
     Active Substance: CIPROFLOXACIN
     Indication: OSTEOMYELITIS
     Dosage: 1500 MILLIGRAM DAILY;
     Route: 048
  2. DILTIAZEM ER [Concomitant]
     Active Substance: DILTIAZEM
  3. ELIQUIS [Concomitant]
     Active Substance: APIXABAN
  4. FUROSEMIDE. [Concomitant]
     Active Substance: FUROSEMIDE
     Route: 065
  5. LATANOPROST. [Concomitant]
     Active Substance: LATANOPROST
  6. SENNOSIDES. [Concomitant]
     Active Substance: SENNOSIDES
  7. ACETAMINOPHEN. [Concomitant]
     Active Substance: ACETAMINOPHEN
  8. CYANOCOBALAMIN. [Concomitant]
     Active Substance: CYANOCOBALAMIN
  9. POLYETHYLENE GLYCOL [Concomitant]
     Active Substance: POLYETHYLENE GLYCOLS
  10. ANTACID [Concomitant]
     Active Substance: ALUMINUM HYDROXIDE\CALCIUM CARBONATE\DIMETHICONE\MAGNESIUM HYDROXIDE
  11. CEFTAZIDIME. [Concomitant]
     Active Substance: CEFTAZIDIME
  12. POTASSIUM CHLORIDE. [Concomitant]
     Active Substance: POTASSIUM CHLORIDE
  13. ZINC OXIDE CREAM [Concomitant]
  14. HUMALOG [Concomitant]
     Active Substance: INSULIN LISPRO
  15. CLOTRIMAZOLE CREAM USP 1% [Concomitant]
  16. BASAGLAR CARTRIDGE [Concomitant]
  17. PANTOPRAZOLE ENTERIC?COATED TABLET [Concomitant]
     Active Substance: PANTOPRAZOLE SODIUM
  18. PROBIOTIC [Concomitant]
     Active Substance: PROBIOTICS NOS
  19. TWOCAL HN [Concomitant]
     Active Substance: DIETARY SUPPLEMENT
  20. ASCORBIC ACID (VITAMIN C) [Concomitant]
     Active Substance: ASCORBIC ACID
  21. CANDESARTAN. [Concomitant]
     Active Substance: CANDESARTAN
  22. DIMENHYDRINATE. [Concomitant]
     Active Substance: DIMENHYDRINATE
  23. HYDROCORTISONE ACETATE CREAM USP [Concomitant]
     Active Substance: HYDROCORTISONE ACETATE

REACTIONS (4)
  - Tubulointerstitial nephritis [Not Recovered/Not Resolved]
  - Muscular weakness [Not Recovered/Not Resolved]
  - Neurotoxicity [Not Recovered/Not Resolved]
  - Tremor [Not Recovered/Not Resolved]
